FAERS Safety Report 7878719-X (Version None)
Quarter: 2011Q4

REPORT INFORMATION
  Report Type: 
  Country: None (occurrence: None)
  Receive Date: 20111101
  Receipt Date: 20111020
  Transmission Date: 20120403
  Serious: Yes (Hospitalization)
  Sender: FDA-Public Use
  Company Number: US-BAYER-2011-024366

PATIENT
  Age: 26 Year
  Sex: Female

DRUGS (7)
  1. ONE A DAY [B12,D2,B3,B6,RETINOL,B2,NA+ ASCORB,B1 MONONITR] [Concomitant]
     Dosage: UNK UNK, QD
     Route: 048
     Dates: start: 20080101
  2. AZITHROMYCIN [Concomitant]
     Indication: INFECTION
     Dosage: 250 MG, UNK
     Route: 048
     Dates: start: 20090126
  3. MIDOL CRAMP [Concomitant]
     Dosage: UNK
     Route: 048
     Dates: start: 20060101
  4. YAZ [Suspect]
     Indication: PREMENSTRUAL SYNDROME
     Dosage: UNK
     Dates: start: 20080915, end: 20090131
  5. YAZ [Suspect]
  6. EXCEDRIN (MIGRAINE) [Concomitant]
     Indication: MIGRAINE
     Dosage: UNK UNK, PRN
     Route: 048
     Dates: start: 20040101
  7. ALEVE [Concomitant]
     Dosage: UNK UNK, PRN
     Route: 048
     Dates: start: 19990101

REACTIONS (6)
  - PAIN [None]
  - CARDIAC FAILURE [None]
  - PULMONARY EMBOLISM [None]
  - EMOTIONAL DISTRESS [None]
  - GENERAL PHYSICAL HEALTH DETERIORATION [None]
  - ANXIETY [None]
